FAERS Safety Report 6413667-3 (Version None)
Quarter: 2009Q4

REPORT INFORMATION
  Report Type: 
  Country: None (occurrence: None)
  Receive Date: 20091026
  Receipt Date: 20091015
  Transmission Date: 20100525
  Serious: Yes (Hospitalization)
  Sender: FDA-Public Use
  Company Number: JP-JNJFOC-20091004534

PATIENT
  Age: 16 Year
  Sex: Female

DRUGS (3)
  1. REMICADE [Suspect]
     Indication: CROHN'S DISEASE
     Dosage: TOTAL OF 1 INFUSION
     Route: 042
  2. PREDNISOLONE [Suspect]
     Indication: CROHN'S DISEASE
     Route: 048
  3. IMURAN [Suspect]
     Indication: CROHN'S DISEASE
     Route: 048

REACTIONS (1)
  - PNEUMATOSIS INTESTINALIS [None]
